FAERS Safety Report 8210103-1 (Version None)
Quarter: 2012Q1

REPORT INFORMATION
  Report Type: 
  Country: None (occurrence: None)
  Receive Date: 20120314
  Receipt Date: 20111025
  Transmission Date: 20120608
  Serious: No
  Sender: FDA-Public Use
  Company Number: US-ASTRAZENECA-2011SE11814

PATIENT
  Age: 53 Year
  Sex: Male

DRUGS (3)
  1. TOPROL-XL [Suspect]
     Route: 048
  2. TRICOR [Suspect]
     Route: 065
  3. CRESTOR [Suspect]
     Route: 048

REACTIONS (2)
  - WEIGHT DECREASED [None]
  - MUSCLE FATIGUE [None]
